FAERS Safety Report 25053621 (Version 3)
Quarter: 2025Q3

REPORT INFORMATION
  Report Type: Spontaneous
  Country: US (occurrence: US)
  Receive Date: 20250307
  Receipt Date: 20250710
  Transmission Date: 20251021
  Serious: Yes (Hospitalization, Other)
  Sender: SANOFI AVENTIS
  Company Number: US-SA-2025SA064486

PATIENT
  Age: 55 Year
  Sex: Female

DRUGS (40)
  1. REZUROCK [Suspect]
     Active Substance: BELUMOSUDIL
     Indication: Graft versus host disease
     Dosage: 200 MG, BID
     Route: 048
     Dates: start: 202401
  2. REZUROCK [Suspect]
     Active Substance: BELUMOSUDIL
     Indication: Acute myeloid leukaemia (in remission)
  3. ACYCLOVIR [Concomitant]
     Active Substance: ACYCLOVIR
  4. ALBUTEROL SULFATE [Concomitant]
     Active Substance: ALBUTEROL SULFATE
  5. ALPRAZOLAM [Concomitant]
     Active Substance: ALPRAZOLAM
  6. ALPRAZOLAM [Concomitant]
     Active Substance: ALPRAZOLAM
  7. ATORVASTATIN [Concomitant]
     Active Substance: ATORVASTATIN
  8. ATORVASTATIN [Concomitant]
     Active Substance: ATORVASTATIN
  9. SODIUM BICARBONATE\SODIUM CHLORIDE [Concomitant]
     Active Substance: SODIUM BICARBONATE\SODIUM CHLORIDE
  10. CYCLOSPORINE [Concomitant]
     Active Substance: CYCLOSPORINE
     Route: 047
  11. ESTRADIOL [Concomitant]
     Active Substance: ESTRADIOL
  12. FAMOTIDINE [Concomitant]
     Active Substance: FAMOTIDINE
  13. FERROUS SULFATE [Concomitant]
     Active Substance: FERROUS SULFATE
  14. FLOVENT HFA [Concomitant]
     Active Substance: FLUTICASONE PROPIONATE
  15. FLUCONAZOLE [Concomitant]
     Active Substance: FLUCONAZOLE
  16. FLUTICASONE [Concomitant]
     Active Substance: FLUTICASONE
  17. FUROSEMIDE [Concomitant]
     Active Substance: FUROSEMIDE
  18. GABAPENTIN [Concomitant]
     Active Substance: GABAPENTIN
  19. LOTEMAX [Concomitant]
     Active Substance: LOTEPREDNOL ETABONATE
     Route: 047
  20. MAGNESIUM OXIDE [Concomitant]
     Active Substance: MAGNESIUM OXIDE
  21. METOPROLOL TARTRATE [Concomitant]
     Active Substance: METOPROLOL TARTRATE
  22. MONTELUKAST SODIUM [Concomitant]
     Active Substance: MONTELUKAST SODIUM
  23. VITAMINS [Concomitant]
     Active Substance: VITAMINS
  24. OFLOXACIN [Concomitant]
     Active Substance: OFLOXACIN
     Route: 047
  25. OMEPRAZOLE [Concomitant]
     Active Substance: OMEPRAZOLE
  26. ORENCIA [Concomitant]
     Active Substance: ABATACEPT
  27. Revaree [Concomitant]
     Route: 067
  28. SPIRONOLACTONE [Concomitant]
     Active Substance: SPIRONOLACTONE
  29. SYSTANE (HYPROMELLOSE 2910 (4000 MPA.S)) [Concomitant]
     Active Substance: HYPROMELLOSE 2910 (4000 MPA.S)
     Route: 047
  30. TYLENOL WITH CODEINE [Concomitant]
     Active Substance: ACETAMINOPHEN\CODEINE PHOSPHATE
  31. VORICONAZOLE [Concomitant]
     Active Substance: VORICONAZOLE
  32. MIDODRINE [Concomitant]
     Active Substance: MIDODRINE
  33. MONTELUKAST [Concomitant]
     Active Substance: MONTELUKAST
  34. CALCIUM [Concomitant]
     Active Substance: CALCIUM
  35. MAGNESIUM [Concomitant]
     Active Substance: MAGNESIUM
  36. VITAMIN D3 [Concomitant]
     Active Substance: CHOLECALCIFEROL
  37. REFRESH OPTIVE [Concomitant]
     Active Substance: CARBOXYMETHYLCELLULOSE SODIUM\GLYCERIN
  38. CALCIUM CARBONATE\CHOLECALCIFEROL [Concomitant]
     Active Substance: CALCIUM CARBONATE\CHOLECALCIFEROL
  39. REFRESH PLUS [Concomitant]
     Active Substance: CARBOXYMETHYLCELLULOSE SODIUM
     Route: 047
  40. ATORVASTATIN CALCIUM [Concomitant]
     Active Substance: ATORVASTATIN CALCIUM

REACTIONS (7)
  - Pseudomonas infection [Recovering/Resolving]
  - Cough [Recovering/Resolving]
  - Rib fracture [Recovering/Resolving]
  - Alopecia [Not Recovered/Not Resolved]
  - Urinary tract infection [Recovering/Resolving]
  - COVID-19 [Recovering/Resolving]
  - Product use in unapproved indication [Unknown]

NARRATIVE: CASE EVENT DATE: 20240101
